FAERS Safety Report 6750881-1 (Version None)
Quarter: 2010Q2

REPORT INFORMATION
  Report Type: 
  Country: None (occurrence: None)
  Receive Date: 20100602
  Receipt Date: 20100521
  Transmission Date: 20101027
  Serious: Yes (Other)
  Sender: FDA-Public Use
  Company Number: NO-BAYER-201026309GPV

PATIENT
  Sex: Female

DRUGS (1)
  1. MIRENA [Suspect]
     Indication: CONTRACEPTION
     Route: 015
     Dates: start: 20050201, end: 20100325

REACTIONS (8)
  - ARTHRALGIA [None]
  - CAROTID ARTERIOSCLEROSIS [None]
  - FIBROADENOMA OF BREAST [None]
  - MENORRHAGIA [None]
  - MENSTRUATION IRREGULAR [None]
  - MUSCULOSKELETAL STIFFNESS [None]
  - PAIN [None]
  - UTERINE CERVIX STENOSIS [None]
